FAERS Safety Report 26001981 (Version 1)
Quarter: 2025Q4

REPORT INFORMATION
  Report Type: Spontaneous
  Country: US (occurrence: US)
  Receive Date: 20251105
  Receipt Date: 20251105
  Transmission Date: 20260117
  Serious: No
  Sender: ABBVIE
  Company Number: US-ABBVIE-6522953

PATIENT
  Sex: Female

DRUGS (1)
  1. RISANKIZUMAB [Suspect]
     Active Substance: RISANKIZUMAB
     Indication: Product used for unknown indication
     Route: 058

REACTIONS (6)
  - Contusion [Unknown]
  - Choking [Unknown]
  - Vomiting [Unknown]
  - Cough [Unknown]
  - Pruritus [Unknown]
  - Petechiae [Unknown]
